FAERS Safety Report 7951147-4 (Version None)
Quarter: 2011Q4

REPORT INFORMATION
  Report Type: 
  Country: None (occurrence: None)
  Receive Date: 20111123
  Receipt Date: 20111114
  Transmission Date: 20120403
  Serious: Yes (Other)
  Sender: FDA-Public Use
  Company Number: 2011SP053980

PATIENT
  Sex: Male

DRUGS (1)
  1. MIRALAX [Suspect]
     Dosage: ;  ;PO
     Route: 048

REACTIONS (1)
  - NEPHROLITHIASIS [None]
